FAERS Safety Report 8494625-4 (Version None)
Quarter: 2012Q2

REPORT INFORMATION
  Report Type: 
  Country: None (occurrence: None)
  Receive Date: 20120627
  Receipt Date: 20120611
  Transmission Date: 20120825
  Serious: No
  Sender: FDA-Public Use
  Company Number: 2012SP033798

PATIENT
  Age: 6 Month
  Sex: Female

DRUGS (3)
  1. METICORTELONE /00016201/ (PREDNISOLONE) [Concomitant]
  2. ZYRTEC (CETIRIZINDE HYDROCHLORIDE) [Concomitant]
  3. CEDAX [Suspect]
     Indication: PRODUCT USED FOR UNKNOWN INDICATION
     Dosage: Q12H

REACTIONS (2)
  - HYPERSENSITIVITY [None]
  - RASH [None]
